FAERS Safety Report 14137429 (Version 2)
Quarter: 2018Q1

REPORT INFORMATION
  Report Type: Spontaneous
  Country: US (occurrence: US)
  Receive Date: 20171027
  Receipt Date: 20180209
  Transmission Date: 20180508
  Serious: No
  Sender: FDA-Public Use
  Company Number: US-ELI_LILLY_AND_COMPANY-US201710003689

PATIENT
  Sex: Male

DRUGS (2)
  1. AXIRON [Suspect]
     Active Substance: TESTOSTERONE
     Indication: HYPERGONADISM
     Dosage: 1 DF, DAILY
     Route: 065
     Dates: start: 20170309
  2. AXIRON [Suspect]
     Active Substance: TESTOSTERONE
     Dosage: 1 DF, QOD
     Route: 065

REACTIONS (2)
  - Blood testosterone abnormal [Unknown]
  - Accidental overdose [Unknown]
